FAERS Safety Report 13388899 (Version 1)
Quarter: 2017Q1

REPORT INFORMATION
  Report Type: Report from Study
  Country: IT (occurrence: IT)
  Receive Date: 20170331
  Receipt Date: 20170331
  Transmission Date: 20170429
  Serious: Yes (Death)
  Sender: FDA-Public Use
  Company Number: IT-ROCHE-1913212

PATIENT
  Sex: Male

DRUGS (5)
  1. BEVACIZUMAB [Suspect]
     Active Substance: BEVACIZUMAB
     Indication: COLORECTAL CANCER METASTATIC
     Dosage: MOST RECENT DOSE PRIOR TO SAE- 15/FEB/2017
     Route: 042
     Dates: start: 20170215
  2. OXALIPLATIN. [Suspect]
     Active Substance: OXALIPLATIN
     Indication: COLORECTAL CANCER METASTATIC
     Dosage: OVER 2 HOURS, MOST RECENT DOSE PRIOR TO SAE- 15/FEB/2017
     Route: 042
     Dates: start: 20170215
  3. IRINOTECAN [Suspect]
     Active Substance: IRINOTECAN
     Indication: COLORECTAL CANCER METASTATIC
     Dosage: OVER 60 MINUTES, MOST RECENT DOSE PRIOR TO SAE- 15/FEB/2017
     Route: 042
     Dates: start: 20170215
  4. FLUOROURACIL. [Suspect]
     Active Substance: FLUOROURACIL
     Indication: COLORECTAL CANCER METASTATIC
     Dosage: 48 HR-CONTINUOUS INFUSION
     Route: 065
     Dates: start: 20170215
  5. LEUCOVORIN. [Suspect]
     Active Substance: LEUCOVORIN
     Indication: COLORECTAL CANCER METASTATIC
     Dosage: OVER 2 HOURS
     Route: 042

REACTIONS (1)
  - Sudden death [Fatal]
